FAERS Safety Report 17398896 (Version 1)
Quarter: 2020Q1

REPORT INFORMATION
  Report Type: Spontaneous
  Country: US (occurrence: US)
  Receive Date: 20200210
  Receipt Date: 20200210
  Transmission Date: 20200409
  Serious: No
  Sender: FDA-Public Use
  Company Number: US-BIOGEN-2019BI00679021

PATIENT
  Age: 58 Year
  Sex: Female
  Weight: 97.61 kg

DRUGS (5)
  1. TYSABRI [Suspect]
     Active Substance: NATALIZUMAB
     Indication: MULTIPLE SCLEROSIS
     Dosage: INFUSED OVER AN HOUR
     Route: 050
  2. TYSABRI [Suspect]
     Active Substance: NATALIZUMAB
     Dosage: INFUSED OVER 1 HOUR
     Route: 050
     Dates: end: 20181022
  3. TYSABRI [Suspect]
     Active Substance: NATALIZUMAB
     Route: 065
     Dates: start: 20120607
  4. TYSABRI [Suspect]
     Active Substance: NATALIZUMAB
     Route: 065
     Dates: start: 20100609, end: 20110616
  5. TYSABRI [Suspect]
     Active Substance: NATALIZUMAB
     Dosage: INFUSED OVER 1 HOUR
     Route: 050
     Dates: start: 20181023

REACTIONS (6)
  - Decreased immune responsiveness [Unknown]
  - Mental disorder [Unknown]
  - Contusion [Recovered/Resolved]
  - Limb injury [Unknown]
  - Prescribed underdose [Unknown]
  - Foot fracture [Unknown]

NARRATIVE: CASE EVENT DATE: 20181023
